FAERS Safety Report 6469313-6 (Version None)
Quarter: 2009Q4

REPORT INFORMATION
  Report Type: 
  Country: None (occurrence: None)
  Receive Date: 20091203
  Receipt Date: 20081106
  Transmission Date: 20100525
  Serious: Yes (Life-Threatening, Hospitalization, Other)
  Sender: FDA-Public Use
  Company Number: US-ELI_LILLY_AND_COMPANY-US200707005710

PATIENT
  Sex: Male
  Weight: 93.424 kg

DRUGS (33)
  1. ZYPREXA [Suspect]
     Indication: BIPOLAR DISORDER
     Dates: start: 19990810
  2. ZYPREXA [Suspect]
     Dosage: 5 MG, UNK
     Route: 048
     Dates: start: 20011201, end: 20020401
  3. LITHIUM [Concomitant]
     Indication: BIPOLAR DISORDER
  4. NAVANE [Concomitant]
     Indication: BIPOLAR DISORDER
  5. VALIUM [Concomitant]
     Dosage: 10 MG, UNK
     Dates: start: 20020412, end: 20020412
  6. BENADRYL [Concomitant]
     Dosage: 50 MG, UNK
     Route: 048
     Dates: start: 20020412, end: 20020412
  7. TAGAMET [Concomitant]
     Dosage: 300 MG, UNK
     Route: 048
     Dates: start: 20020412, end: 20020412
  8. LIPITOR [Concomitant]
     Dosage: 10 MG, UNK
     Dates: start: 20000413
  9. ACCUPRIL [Concomitant]
     Dosage: 10 MG, UNK
     Dates: start: 20000414
  10. METRONIDAZOL [Concomitant]
     Dosage: 500 MG, UNK
     Dates: start: 20000414
  11. ZOCOR [Concomitant]
     Dosage: 20 MG, UNK
     Dates: start: 20000828
  12. ASPIRIN [Concomitant]
     Dosage: 81 MG, UNK
     Dates: start: 20011207
  13. RANITIDINE [Concomitant]
     Dosage: 150 MG, UNK
     Dates: start: 20011207
  14. TOPROL-XL [Concomitant]
     Dosage: 50 MG, UNK
     Dates: start: 20011207
  15. DEPAKOTE [Concomitant]
     Dosage: 250 MG, UNK
     Dates: start: 20020404
  16. TRAZODONE HCL [Concomitant]
     Dosage: 50 MG, UNK
     Dates: start: 20020404
  17. NITROSTAT [Concomitant]
     Dosage: 0.4 MG, UNK
     Route: 060
     Dates: start: 20020412
  18. PLAVIX [Concomitant]
     Dosage: 75 MG, UNK
     Dates: start: 20020412
  19. KETOROLAC TROMETHAMINE [Concomitant]
     Dosage: 10 MG, UNK
     Dates: start: 20021017
  20. RISPERDAL [Concomitant]
     Dosage: 2 MG, UNK
     Dates: start: 20020925
  21. LISINOPRIL [Concomitant]
     Dosage: 5 MG, UNK
     Dates: start: 20030127
  22. ABILIFY [Concomitant]
     Dosage: 5 MG, UNK
     Dates: start: 20040909
  23. NEURONTIN [Concomitant]
     Dosage: 100 MG, UNK
     Dates: start: 20040924
  24. PRAVACHOL [Concomitant]
     Dosage: 80 MG, UNK
     Dates: start: 20050103
  25. ZETIA [Concomitant]
     Dosage: 10 MG, UNK
     Dates: start: 20050409
  26. BENZTROPINE MESYLATE [Concomitant]
     Dosage: 2 MG, UNK
     Dates: start: 20051013
  27. THIOTHIXENE [Concomitant]
     Dosage: 5 MG, UNK
     Dates: start: 20051013
  28. PROMETHAZINE [Concomitant]
     Dosage: 25 MG, UNK
     Dates: start: 20060703
  29. LEVITRA [Concomitant]
     Dosage: 20 MG, UNK
     Dates: start: 20070521
  30. TRAMADOL HCL [Concomitant]
     Dosage: 50 MG, UNK
     Dates: start: 20070616
  31. METOCLOPRAMIDE [Concomitant]
     Dosage: 10 MG, UNK
     Dates: start: 20070705
  32. VIAGRA [Concomitant]
     Dosage: 100 MG, UNK
     Dates: start: 20070711
  33. TIZANIDINE HCL [Concomitant]
     Dosage: 4 MG, UNK
     Dates: start: 20080523

REACTIONS (40)
  - ARTHRALGIA [None]
  - AUTONOMIC NEUROPATHY [None]
  - BLOOD GLUCOSE ABNORMAL [None]
  - BLOOD GLUCOSE INCREASED [None]
  - BLOOD SODIUM DECREASED [None]
  - CARDIAC DISORDER [None]
  - CHEST PAIN [None]
  - CORONARY ARTERY DISEASE [None]
  - DIABETES MELLITUS INADEQUATE CONTROL [None]
  - DIABETIC AUTONOMIC NEUROPATHY [None]
  - DIABETIC HYPEROSMOLAR COMA [None]
  - DIABETIC KETOACIDOSIS [None]
  - FATIGUE [None]
  - FRACTURE [None]
  - GASTRODUODENITIS [None]
  - GASTROINTESTINAL HAEMORRHAGE [None]
  - HAEMATURIA [None]
  - HYPERLIPIDAEMIA [None]
  - HYPOGLYCAEMIA [None]
  - HYPOKALAEMIA [None]
  - HYPOVOLAEMIA [None]
  - IMPAIRED GASTRIC EMPTYING [None]
  - LABORATORY TEST ABNORMAL [None]
  - LEUKOCYTOSIS [None]
  - MALAISE [None]
  - METABOLIC ACIDOSIS [None]
  - MULTI-ORGAN FAILURE [None]
  - MUSCLE SPASMS [None]
  - NAUSEA [None]
  - NERVOUS SYSTEM DISORDER [None]
  - PAIN [None]
  - PANCREATITIS ACUTE [None]
  - RENAL FAILURE [None]
  - STARVATION [None]
  - SUICIDAL BEHAVIOUR [None]
  - TACHYCARDIA [None]
  - TYPE 1 DIABETES MELLITUS [None]
  - TYPE 2 DIABETES MELLITUS [None]
  - VOMITING [None]
  - WEIGHT DECREASED [None]
